FAERS Safety Report 4884732-7 (Version None)
Quarter: 2006Q1

REPORT INFORMATION
  Report Type: 
  Country: None (occurrence: None)
  Receive Date: 20060119
  Receipt Date: 20051212
  Transmission Date: 20060701
  Serious: Yes (Death)
  Sender: FDA-Public Use
  Company Number: IT-BRISTOL-MYERS SQUIBB COMPANY-13216437

PATIENT
  Age: 30 Year
  Sex: Female

DRUGS (2)
  1. ABILIFY [Suspect]
     Route: 048
     Dates: start: 20051107
  2. LITHIUM CARBONATE [Concomitant]
     Dates: start: 20051101

REACTIONS (1)
  - COMPLETED SUICIDE [None]
